FAERS Safety Report 4414954-0 (Version None)
Quarter: 2004Q3

REPORT INFORMATION
  Report Type: 
  Country: None (occurrence: None)
  Receive Date: 20040803
  Receipt Date: 20040803
  Transmission Date: 20050211
  Serious: Yes (Other)
  Sender: FDA-Public Use
  Company Number: None

PATIENT
  Sex: Female
  Weight: 58.9676 kg

DRUGS (1)
  1. DEFEROXAMINE  500 MG [Suspect]
     Indication: THALASSAEMIA
     Dosage: 1000 MG SC QD
     Route: 058
     Dates: start: 20040715

REACTIONS (2)
  - FEELING HOT [None]
  - LOCALISED SKIN REACTION [None]
